FAERS Safety Report 18422068 (Version 6)
Quarter: 2020Q4

REPORT INFORMATION
  Report Type: Spontaneous
  Country: CZ (occurrence: CZ)
  Receive Date: 20201023
  Receipt Date: 20201210
  Transmission Date: 20210114
  Serious: Yes (Life-Threatening, Other)
  Sender: FDA-Public Use
  Company Number: NVSC2020CZ273124

PATIENT
  Age: 82 Year
  Sex: Male

DRUGS (9)
  1. LONSURF [Suspect]
     Active Substance: TIPIRACIL HYDROCHLORIDE\TRIFLURIDINE
     Indication: APPENDIX CANCER
     Dosage: UNK, CYCLE
     Route: 048
     Dates: start: 201707
  2. IRINOTECAN [Suspect]
     Active Substance: IRINOTECAN
     Indication: APPENDIX CANCER
     Dosage: UNK UNK, CYCLIC
     Route: 065
  3. CAPECITABINE. [Suspect]
     Active Substance: CAPECITABINE
     Indication: APPENDIX CANCER
     Dosage: UNK, CYCLIC
     Route: 065
  4. FLUOROURACIL. [Suspect]
     Active Substance: FLUOROURACIL
     Indication: APPENDIX CANCER
     Dosage: UNK UNK, CYCLE
     Route: 065
     Dates: start: 20121122
  5. FILGRASTIM [Suspect]
     Active Substance: FILGRASTIM
     Indication: APPENDIX CANCER
     Dosage: UNK, CYCLIC
     Route: 065
  6. CALCIUM FOLINATE [Suspect]
     Active Substance: LEUCOVORIN CALCIUM
     Indication: APPENDIX CANCER
     Dosage: UNK UNK, CYCLE, 3 CYCLES OF FOLFOX-4
     Route: 065
     Dates: start: 20121122
  7. RALTITREXED [Suspect]
     Active Substance: RALTITREXED
     Indication: GASTROINTESTINAL TOXICITY
     Dosage: UNK
     Route: 065
  8. LONSURF [Suspect]
     Active Substance: TIPIRACIL HYDROCHLORIDE\TRIFLURIDINE
     Dosage: UNK, A TOTAL OF 20 CYCLES
     Route: 048
  9. OXALIPLATIN. [Suspect]
     Active Substance: OXALIPLATIN
     Indication: APPENDIX CANCER
     Dosage: 3 CYCLES OF FOLFOX-4
     Route: 065
     Dates: start: 20121122

REACTIONS (5)
  - Condition aggravated [Recovered/Resolved]
  - Anaemia [Recovered/Resolved]
  - Haematotoxicity [Recovering/Resolving]
  - Neutropenia [Recovered/Resolved]
  - Disease progression [Unknown]

NARRATIVE: CASE EVENT DATE: 2020
